FAERS Safety Report 6526195-1 (Version None)
Quarter: 2009Q4

REPORT INFORMATION
  Report Type: 
  Country: None (occurrence: None)
  Receive Date: 20091228
  Receipt Date: 20091216
  Transmission Date: 20100525
  Serious: Yes (Other)
  Sender: FDA-Public Use
  Company Number: 230581M09USA

PATIENT
  Age: 63 Year
  Sex: Female

DRUGS (3)
  1. REBIF [Suspect]
     Indication: MULTIPLE SCLEROSIS
     Dosage: 44 MCG, 3 IN 1 WEEKS, SUBCUTANEOUS
     Route: 058
     Dates: start: 20070822
  2. SULFA (ALL OTHER THERAPEUTIC PRODUCTS) [Suspect]
     Indication: UPPER RESPIRATORY TRACT INFECTION
     Dates: start: 20090901, end: 20090901
  3. TYLENOL [Concomitant]

REACTIONS (8)
  - HYPERSENSITIVITY [None]
  - INJECTION SITE HAEMATOMA [None]
  - INJECTION SITE MASS [None]
  - INJECTION SITE REACTION [None]
  - MIGRAINE [None]
  - PRECANCEROUS SKIN LESION [None]
  - SKIN INFECTION [None]
  - UPPER RESPIRATORY TRACT INFECTION [None]
